FAERS Safety Report 25608703 (Version 1)
Quarter: 2025Q3

REPORT INFORMATION
  Report Type: Other
  Country: GB (occurrence: GB)
  Receive Date: 20250726
  Receipt Date: 20250726
  Transmission Date: 20251021
  Serious: Yes (Other)
  Sender: IPCA
  Company Number: None

PATIENT

DRUGS (1)
  1. LOSARTAN POTASSIUM [Suspect]
     Active Substance: LOSARTAN POTASSIUM
     Indication: Adverse drug reaction
     Route: 065
     Dates: start: 20250613

REACTIONS (1)
  - Alopecia [Not Recovered/Not Resolved]
